FAERS Safety Report 7392885-4 (Version None)
Quarter: 2011Q2

REPORT INFORMATION
  Report Type: 
  Country: None (occurrence: None)
  Receive Date: 20110404
  Receipt Date: 20110322
  Transmission Date: 20111010
  Serious: Yes (Life-Threatening, Hospitalization, Other)
  Sender: FDA-Public Use
  Company Number: US-BAYER-2011-025932

PATIENT
  Age: 12 Year
  Sex: Female
  Weight: 64 kg

DRUGS (5)
  1. CITALOPRAM [Concomitant]
  2. DEXTROAMPHETAMINE [Concomitant]
  3. ACETAMINOPHEN [Suspect]
     Indication: SUICIDE ATTEMPT
     Dosage: 175 *500MG, ONCE
  4. MIDOL PM CAPLETS [Suspect]
     Indication: SUICIDE ATTEMPT
     Dosage: 48 DF, ONCE
     Route: 048
  5. RISPERIDONE [Concomitant]

REACTIONS (2)
  - OVERDOSE [None]
  - HEPATIC FAILURE [None]
